FAERS Safety Report 4691865-7 (Version None)
Quarter: 2005Q2

REPORT INFORMATION
  Report Type: 
  Country: None (occurrence: None)
  Receive Date: 20050615
  Receipt Date: 20050615
  Transmission Date: 20051028
  Serious: Yes (Other)
  Sender: FDA-Public Use
  Company Number: None

PATIENT
  Sex: Male

DRUGS (11)
  1. BUPROPRION SR  200 MG [Suspect]
     Indication: ANGER
     Dosage: PO BID
     Route: 048
     Dates: start: 20050101
  2. BUPROPRION SR  200 MG [Suspect]
     Indication: DEPRESSION
     Dosage: PO BID
     Route: 048
     Dates: start: 20050101
  3. ZANAFLEX [Concomitant]
  4. NEURONTIN [Concomitant]
  5. CATAPRES [Concomitant]
  6. TETRACYCLINE [Concomitant]
  7. TOPICAL CLOTRIMAZOLE [Concomitant]
  8. LEVAQUIN [Concomitant]
  9. MACRODANTIN [Concomitant]
  10. SUPROFEN [Concomitant]
  11. ENVLOSE FIBERCON [Concomitant]

REACTIONS (3)
  - ANGER [None]
  - CONDITION AGGRAVATED [None]
  - THERAPEUTIC RESPONSE UNEXPECTED WITH DRUG SUBSTITUTION [None]
